FAERS Safety Report 26114925 (Version 1)
Quarter: 2025Q4

REPORT INFORMATION
  Report Type: Spontaneous
  Country: US (occurrence: US)
  Receive Date: 20251203
  Receipt Date: 20251203
  Transmission Date: 20260117
  Serious: Yes (Hospitalization)
  Sender: JOHNSON AND JOHNSON
  Company Number: US-JNJFOC-20251173410

PATIENT
  Age: 5 Decade
  Sex: Female
  Weight: 72.6 kg

DRUGS (11)
  1. OPSUMIT [Suspect]
     Active Substance: MACITENTAN
     Indication: Product used for unknown indication
     Route: 048
  2. ORENITRAM [Suspect]
     Active Substance: TREPROSTINIL
     Indication: Pulmonary arterial hypertension
     Dosage: 3.625 MG, Q8H, ORAL USE
     Route: 048
     Dates: start: 20250425
  3. ORENITRAM [Suspect]
     Active Substance: TREPROSTINIL
     Route: 048
     Dates: start: 2025
  4. REVATIO [Concomitant]
     Active Substance: SILDENAFIL CITRATE
     Indication: Product used for unknown indication
  5. NORVASC [Concomitant]
     Active Substance: AMLODIPINE BESYLATE
     Indication: Product used for unknown indication
  6. NORVASC [Concomitant]
     Active Substance: AMLODIPINE BESYLATE
  7. NORVASC [Concomitant]
     Active Substance: AMLODIPINE BESYLATE
  8. NORVASC [Concomitant]
     Active Substance: AMLODIPINE BESYLATE
  9. NORVASC [Concomitant]
     Active Substance: AMLODIPINE BESYLATE
  10. NORVASC [Concomitant]
     Active Substance: AMLODIPINE BESYLATE
  11. NORVASC [Concomitant]
     Active Substance: AMLODIPINE BESYLATE

REACTIONS (3)
  - Product use issue [Unknown]
  - Exercise tolerance decreased [Unknown]
  - Oxygen consumption increased [Unknown]

NARRATIVE: CASE EVENT DATE: 20250101
